FAERS Safety Report 19943800 (Version 1)
Quarter: 2021Q4

REPORT INFORMATION
  Report Type: Report from Study
  Country: IN (occurrence: IN)
  Receive Date: 20211012
  Receipt Date: 20211012
  Transmission Date: 20220303
  Serious: Yes (Death, Hospitalization, Other)
  Sender: FDA-Public Use
  Company Number: IN-BAXTER-2021BAX029400

PATIENT
  Age: 65 Year
  Sex: Female

DRUGS (2)
  1. CALCIUM CHLORIDE\DEXTROSE\MAGNESIUM CHLORIDE\SODIUM CHLORIDE\SODIUM LA [Suspect]
     Active Substance: CALCIUM CHLORIDE\DEXTROSE\MAGNESIUM CHLORIDE\SODIUM CHLORIDE\SODIUM LACTATE
     Indication: Renal failure
     Dosage: 2 BAGS
     Route: 033
     Dates: end: 20210915
  2. EXTRANEAL [Suspect]
     Active Substance: CALCIUM CHLORIDE\ICODEXTRIN\MAGNESIUM CHLORIDE\SODIUM CHLORIDE\SODIUM LACTATE
     Indication: Renal failure
     Dosage: 1 BAG
     Route: 033
     Dates: end: 20210915

REACTIONS (4)
  - Death [Fatal]
  - Dyspnoea [Not Recovered/Not Resolved]
  - Peritonitis [Not Recovered/Not Resolved]
  - Peritoneal dialysis complication [Recovered/Resolved]

NARRATIVE: CASE EVENT DATE: 20210911
